FAERS Safety Report 9180871 (Version 1)
Quarter: 2013Q1

REPORT INFORMATION
  Report Type: Spontaneous
  Country: US (occurrence: US)
  Receive Date: 20130322
  Receipt Date: 20130322
  Transmission Date: 20140127
  Serious: Yes (Death)
  Sender: FDA-Public Use
  Company Number: US-009507513-1303USA008010

PATIENT
  Sex: Female

DRUGS (3)
  1. VICTRELIS [Suspect]
     Indication: CHRONIC HEPATITIS C
     Dosage: 4 TABLETS 3 TIMES A DAY
     Route: 048
  2. REBETOL [Suspect]
     Dosage: DAILY DOSE=DIVIDED DOSE
     Route: 048
     Dates: start: 20120928
  3. PEGINTERFERON ALFA-2A [Suspect]
     Indication: CHRONIC HEPATITIS C
     Dosage: 180 MICROGRAM, QW
     Route: 058
     Dates: start: 20120928

REACTIONS (9)
  - Hepatic failure [Fatal]
  - Haematochezia [Unknown]
  - Bronchitis [Unknown]
  - Blood glucose increased [Unknown]
  - Pain in extremity [Unknown]
  - Back pain [Unknown]
  - Confusional state [Unknown]
  - Dyspnoea [Unknown]
  - Fatigue [Unknown]
